FAERS Safety Report 19776127 (Version 2)
Quarter: 2021Q3

REPORT INFORMATION
  Report Type: Report from Study
  Country: None (occurrence: US)
  Receive Date: 20210902
  Receipt Date: 20210928
  Transmission Date: 20211014
  Serious: No
  Sender: FDA-Public Use
  Company Number: US-ABBVIE-21K-163-4062942-00

PATIENT
  Sex: Female
  Weight: 64.47 kg

DRUGS (3)
  1. MODERNA COVID?19 VACCINE [Concomitant]
     Active Substance: CX-024414
     Route: 030
     Dates: start: 20210318, end: 20210318
  2. HUMIRA [Suspect]
     Active Substance: ADALIMUMAB
     Indication: UVEITIS
     Route: 058
     Dates: start: 20201123
  3. MODERNA COVID?19 VACCINE [Concomitant]
     Active Substance: CX-024414
     Indication: COVID-19 IMMUNISATION
     Route: 030
     Dates: start: 20210206, end: 20210206

REACTIONS (8)
  - Urinary tract infection [Recovered/Resolved]
  - Constipation [Recovered/Resolved]
  - Weight decreased [Recovering/Resolving]
  - Abdominal discomfort [Unknown]
  - Decreased appetite [Recovered/Resolved]
  - Faecaloma [Recovered/Resolved]
  - Dyschezia [Recovered/Resolved]
  - Faeces hard [Recovered/Resolved]

NARRATIVE: CASE EVENT DATE: 2021
